FAERS Safety Report 10560386 (Version 1)
Quarter: 2014Q4

REPORT INFORMATION
  Report Type: Spontaneous
  Country: US (occurrence: None)
  Receive Date: 20141031
  Receipt Date: 20141031
  Transmission Date: 20150529
  Serious: Yes (Life-Threatening, Other)
  Sender: FDA-Public Use
  Company Number: None

PATIENT
  Age: 40 Year
  Sex: Male
  Weight: 86 kg

DRUGS (1)
  1. CARBOPLATIN. [Suspect]
     Active Substance: CARBOPLATIN

REACTIONS (10)
  - Urticaria [None]
  - Nausea [None]
  - Cough [None]
  - Malaise [None]
  - Headache [None]
  - Dyspnoea [None]
  - Cyanosis [None]
  - Feeling hot [None]
  - Hyporesponsive to stimuli [None]
  - Swelling face [None]

NARRATIVE: CASE EVENT DATE: 20140130
